FAERS Safety Report 16173539 (Version 2)
Quarter: 2019Q2

REPORT INFORMATION
  Report Type: Report from Study
  Country: US (occurrence: US)
  Receive Date: 20190409
  Receipt Date: 20190520
  Transmission Date: 20190711
  Serious: Yes (Death, Hospitalization, Other)
  Sender: FDA-Public Use
  Company Number: US-JNJFOC-20190133249

PATIENT
  Age: 52 Year
  Sex: Male

DRUGS (27)
  1. ULORIC [Concomitant]
     Active Substance: FEBUXOSTAT
  2. CLONIDINE HCL [Concomitant]
     Active Substance: CLONIDINE HYDROCHLORIDE
  3. DICYCLOMINE [Concomitant]
     Active Substance: DICYCLOMINE HYDROCHLORIDE
  4. FERROUS SULFATE. [Concomitant]
     Active Substance: FERROUS SULFATE
  5. FUROSEMIDE. [Concomitant]
     Active Substance: FUROSEMIDE
  6. PRILOSEC [Concomitant]
     Active Substance: OMEPRAZOLE MAGNESIUM
  7. COREG [Concomitant]
     Active Substance: CARVEDILOL
  8. NICODERM CQ [Concomitant]
     Active Substance: NICOTINE
  9. IMBRUVICA [Suspect]
     Active Substance: IBRUTINIB
     Indication: CHRONIC LYMPHOCYTIC LEUKAEMIA
     Route: 048
     Dates: start: 20181006, end: 20190124
  10. CELEXA [Concomitant]
     Active Substance: CITALOPRAM HYDROBROMIDE
  11. GABAPENTIN. [Concomitant]
     Active Substance: GABAPENTIN
  12. SPIRONOLACTONE. [Concomitant]
     Active Substance: SPIRONOLACTONE
  13. IMBRUVICA [Suspect]
     Active Substance: IBRUTINIB
     Indication: CHRONIC LYMPHOCYTIC LEUKAEMIA
     Route: 048
     Dates: start: 201606
  14. SALBUTAMOL SULFATE [Concomitant]
     Active Substance: ALBUTEROL SULFATE
  15. LIPITOR [Concomitant]
     Active Substance: ATORVASTATIN CALCIUM
  16. INCRUSE ELLIPTA [Concomitant]
     Active Substance: UMECLIDINIUM BROMIDE
  17. IMDUR [Concomitant]
     Active Substance: ISOSORBIDE MONONITRATE
  18. ALBUTEROL. [Concomitant]
     Active Substance: ALBUTEROL
  19. ASPIRIN. [Concomitant]
     Active Substance: ASPIRIN
  20. IMBRUVICA [Suspect]
     Active Substance: IBRUTINIB
     Indication: CHRONIC LYMPHOCYTIC LEUKAEMIA
     Route: 048
     Dates: start: 20180102, end: 20190124
  21. BREO ELLIPTA [Concomitant]
     Active Substance: FLUTICASONE FUROATE\VILANTEROL TRIFENATATE
  22. MOBIC [Concomitant]
     Active Substance: MELOXICAM
  23. IMBRUVICA [Suspect]
     Active Substance: IBRUTINIB
     Indication: CHRONIC LYMPHOCYTIC LEUKAEMIA
     Route: 048
     Dates: start: 20171205, end: 20181005
  24. BACLOFEN. [Concomitant]
     Active Substance: BACLOFEN
  25. CALCIUM [Concomitant]
     Active Substance: CALCIUM
  26. LISINOPRIL. [Concomitant]
     Active Substance: LISINOPRIL
  27. LASIX [Concomitant]
     Active Substance: FUROSEMIDE

REACTIONS (8)
  - Cardiogenic shock [Fatal]
  - Disease progression [Fatal]
  - Off label use [Unknown]
  - Incorrect dose administered [Unknown]
  - Drug ineffective [Unknown]
  - Tumour lysis syndrome [Fatal]
  - Respiratory failure [Fatal]
  - Acute kidney injury [Unknown]

NARRATIVE: CASE EVENT DATE: 20171205
